FAERS Safety Report 7293039-2 (Version None)
Quarter: 2011Q1

REPORT INFORMATION
  Report Type: 
  Country: None (occurrence: None)
  Receive Date: 20110215
  Receipt Date: 20110211
  Transmission Date: 20110831
  Serious: Yes (Death, Other)
  Sender: FDA-Public Use
  Company Number: US-PFIZER INC-2010171558

PATIENT
  Sex: Male

DRUGS (11)
  1. ZOCOR [Concomitant]
     Indication: BLOOD CHOLESTEROL INCREASED
     Dosage: UNK
     Dates: start: 20040101
  2. OXYCODONE HCL AND ACETAMINOPHEN [Concomitant]
     Indication: PAIN
     Dosage: UNK
     Dates: start: 20050101
  3. KLONOPIN [Concomitant]
     Indication: ANXIETY
     Dosage: UNK
     Dates: start: 20050101
  4. VYTORIN [Concomitant]
     Indication: BLOOD CHOLESTEROL INCREASED
     Dosage: UNK
     Dates: start: 20040101
  5. CYMBALTA [Concomitant]
     Indication: PAIN
     Dosage: UNK
     Dates: start: 20050101
  6. PRILOSEC [Concomitant]
     Dosage: UNK
     Dates: start: 20040101
  7. VALIUM [Concomitant]
     Indication: ANXIETY
     Dosage: UNK
     Dates: start: 20050101
  8. XANAX [Concomitant]
     Indication: ANXIETY
     Dosage: UNK
     Dates: start: 20050101
  9. HYDROCODONE [Concomitant]
     Indication: PAIN
     Dosage: UNK
     Dates: start: 20050101
  10. CHANTIX [Suspect]
     Indication: SMOKING CESSATION THERAPY
     Dosage: UNK
     Route: 048
     Dates: start: 20081101
  11. ACIPHEX [Concomitant]
     Dosage: UNK
     Dates: start: 20040101

REACTIONS (5)
  - COMPLETED SUICIDE [None]
  - AGITATION [None]
  - ANXIETY [None]
  - INSOMNIA [None]
  - DEPRESSION [None]
